FAERS Safety Report 13199690 (Version 2)
Quarter: 2017Q1

REPORT INFORMATION
  Report Type: Spontaneous
  Country: US (occurrence: US)
  Receive Date: 20170208
  Receipt Date: 20170306
  Transmission Date: 20170428
  Serious: Yes (Other)
  Sender: FDA-Public Use
  Company Number: US-VERTEX PHARMACEUTICALS-2017-000682

PATIENT
  Age: 35 Year
  Sex: Female

DRUGS (12)
  1. ORKAMBI [Suspect]
     Active Substance: IVACAFTOR\LUMACAFTOR
     Indication: CYSTIC FIBROSIS
     Dosage: 400/250 MG, BID
     Route: 048
     Dates: start: 20150911, end: 20170120
  2. AQUADEKS [Concomitant]
     Active Substance: MINERALS\VITAMINS
     Route: 048
  3. CREON [Concomitant]
     Active Substance: PANCRELIPASE AMYLASE\PANCRELIPASE LIPASE\PANCRELIPASE PROTEASE
  4. VITAMIN A [Concomitant]
     Active Substance: VITAMIN A
  5. VENTOLIN [Concomitant]
     Active Substance: ALBUTEROL SULFATE
  6. SYMBICORT [Concomitant]
     Active Substance: BUDESONIDE\FORMOTEROL FUMARATE DIHYDRATE
  7. MEPHYTON [Concomitant]
     Active Substance: PHYTONADIONE
  8. VITAMIN E [Concomitant]
     Active Substance: .ALPHA.-TOCOPHEROL
  9. VITAMIN D3 [Concomitant]
     Active Substance: CHOLECALCIFEROL
  10. PULMOZYME [Concomitant]
     Active Substance: DORNASE ALFA
  11. BETHKIS [Concomitant]
     Active Substance: TOBRAMYCIN
     Dosage: UNK
  12. AZITHROMYCIN ANHYDROUS. [Concomitant]
     Active Substance: AZITHROMYCIN ANHYDROUS

REACTIONS (2)
  - Chest discomfort [Recovered/Resolved]
  - Dyspnoea [Not Recovered/Not Resolved]

NARRATIVE: CASE EVENT DATE: 201701
